FAERS Safety Report 13988885 (Version 2)
Quarter: 2017Q3

REPORT INFORMATION
  Report Type: Spontaneous
  Country: RU (occurrence: RU)
  Receive Date: 20170919
  Receipt Date: 20170926
  Transmission Date: 20171128
  Serious: Yes (Hospitalization)
  Sender: FDA-Public Use
  Company Number: RU-ASTRAZENECA-2017SE94007

PATIENT
  Age: 46 Year
  Sex: Female
  Weight: 89 kg

DRUGS (5)
  1. CIPROFLOXACIN. [Concomitant]
     Active Substance: CIPROFLOXACIN
  2. FORXIGA [Suspect]
     Active Substance: DAPAGLIFLOZIN
     Indication: TYPE 2 DIABETES MELLITUS
     Route: 048
     Dates: start: 201611
  3. PEFLOXACIN [Concomitant]
     Active Substance: PEFLOXACIN
  4. METFORMIN [Concomitant]
     Active Substance: METFORMIN HYDROCHLORIDE
  5. SUPRAX [Concomitant]
     Active Substance: CEFIXIME

REACTIONS (3)
  - Blood glucose increased [Recovered/Resolved]
  - Pyelonephritis [Recovered/Resolved]
  - Abdominal abscess [Unknown]

NARRATIVE: CASE EVENT DATE: 201611
